FAERS Safety Report 9108712 (Version 1)
Quarter: 2013Q1

REPORT INFORMATION
  Report Type: Spontaneous
  Country: US (occurrence: US)
  Receive Date: 20130222
  Receipt Date: 20130222
  Transmission Date: 20140127
  Serious: Yes (Other)
  Sender: FDA-Public Use
  Company Number: US-SANOFI-AVENTIS-2013SA015906

PATIENT
  Age: 82 Year
  Sex: Female

DRUGS (4)
  1. ALLEGRA [Suspect]
     Indication: HYPERSENSITIVITY
     Dosage: FREQUENCY AS NEEDED
     Route: 048
     Dates: start: 201302
  2. DIOVANE [Concomitant]
     Indication: BLOOD PRESSURE
  3. ATENOLOL [Concomitant]
     Indication: BLOOD PRESSURE
  4. HYOSCYAMINE [Concomitant]
     Indication: BLADDER SPASM
     Dates: start: 201211

REACTIONS (2)
  - Blood pressure increased [Not Recovered/Not Resolved]
  - Urinary tract infection [Unknown]
